FAERS Safety Report 6232016-7 (Version None)
Quarter: 2009Q2

REPORT INFORMATION
  Report Type: 
  Country: None (occurrence: None)
  Receive Date: 20090612
  Receipt Date: 20090601
  Transmission Date: 20091009
  Serious: Yes (Other)
  Sender: FDA-Public Use
  Company Number: BR-WYE-H09553609

PATIENT
  Age: 51 Year
  Sex: Female

DRUGS (3)
  1. PRISTIQ (DESVENLAFAXINE SUCCINATE MONOHYDRATE, TABLET, EXTENDED RELEAS [Suspect]
     Indication: DEPRESSION
     Dosage: 50 MG 1X PER 1 DAY, ORAL
     Route: 048
     Dates: start: 20090519
  2. FLUOXETINE [Suspect]
     Indication: DEPRESSION
     Dosage: ^TABLET-ONCE DAILY:, UNKNOWN
     Dates: end: 20090522
  3. ALPRAZOLAM [Concomitant]

REACTIONS (5)
  - ANXIETY [None]
  - DIZZINESS [None]
  - DRUG INTERACTION [None]
  - SEROTONIN SYNDROME [None]
  - TINNITUS [None]
